FAERS Safety Report 14523718 (Version 1)
Quarter: 2018Q1

REPORT INFORMATION
  Report Type: Report from Study
  Country: None (occurrence: US)
  Receive Date: 20180213
  Receipt Date: 20180213
  Transmission Date: 20180509
  Serious: Yes (Hospitalization, Other)
  Sender: FDA-Public Use
  Company Number: US-ABBVIE-18K-163-2250609-00

PATIENT
  Age: 54 Year
  Sex: Male
  Weight: 102.6 kg

DRUGS (5)
  1. HUMIRA [Suspect]
     Active Substance: ADALIMUMAB
     Indication: HIDRADENITIS
     Route: 058
     Dates: start: 201704, end: 201704
  2. HUMIRA [Suspect]
     Active Substance: ADALIMUMAB
     Route: 058
     Dates: start: 2017, end: 2017
  3. HUMIRA [Suspect]
     Active Substance: ADALIMUMAB
     Route: 058
     Dates: end: 201710
  4. HUMIRA [Suspect]
     Active Substance: ADALIMUMAB
     Route: 058
     Dates: end: 20171210
  5. HUMIRA [Suspect]
     Active Substance: ADALIMUMAB
     Indication: HIDRADENITIS
     Route: 058
     Dates: start: 20180207, end: 20180207

REACTIONS (12)
  - Oedema blister [Recovered/Resolved]
  - Wrong technique in product usage process [Unknown]
  - Drug prescribing error [Recovered/Resolved]
  - Purulence [Recovered/Resolved]
  - Swelling [Recovering/Resolving]
  - Joint range of motion decreased [Recovering/Resolving]
  - Hidradenitis [Not Recovered/Not Resolved]
  - Cyst [Unknown]
  - Localised oedema [Recovering/Resolving]
  - Drug effect decreased [Not Recovered/Not Resolved]
  - Incorrect dose administered [Unknown]
  - Stress [Recovered/Resolved]

NARRATIVE: CASE EVENT DATE: 2017
